FAERS Safety Report 19361186 (Version 1)
Quarter: 2021Q2

REPORT INFORMATION
  Report Type: Spontaneous
  Country: CN (occurrence: CN)
  Receive Date: 20210601
  Receipt Date: 20210601
  Transmission Date: 20210717
  Serious: Yes (Other)
  Sender: FDA-Public Use
  Company Number: CN-PFIZER INC-2021574323

PATIENT
  Age: 50 Year
  Sex: Male

DRUGS (1)
  1. METHYLPREDNISOLONE. [Suspect]
     Active Substance: METHYLPREDNISOLONE
     Dosage: 5 MG, 1X/DAY (5MG/QD)
     Route: 048

REACTIONS (2)
  - Brain abscess [Recovering/Resolving]
  - Nocardiosis [Recovering/Resolving]
